FAERS Safety Report 4285887-8 (Version None)
Quarter: 2004Q1

REPORT INFORMATION
  Report Type: 
  Country: None (occurrence: None)
  Receive Date: 20040203
  Receipt Date: 20040128
  Transmission Date: 20041129
  Serious: Yes (Hospitalization)
  Sender: FDA-Public Use
  Company Number: STA-AE-04-MTX-032

PATIENT
  Age: 67 Year
  Sex: Female

DRUGS (9)
  1. RHEUMATREX [Suspect]
     Indication: ARTHRITIS
     Dosage: 2 MG 1X PER 1 WK, ORAL
     Route: 048
     Dates: start: 20030804, end: 20030901
  2. BUFFERIN (ACETYLSALICYLIC ACID/ALUMINUM GLYCINATE/MAGNESIUM CARBONATE [Concomitant]
  3. CALCIUM CARBONATE [Concomitant]
  4. ROCALTROL [Concomitant]
  5. ALOSENN (ACHILLEA/RUBIA ROOT TINCTURE/SENAN FRUIT/SENNA LEAF/TARAKACUM [Concomitant]
  6. DOPS (DROXIDOPA) [Concomitant]
  7. SELBEX (TEPERNONE) [Concomitant]
  8. VITAMEDIN (BENFOTIAMINE/CYANOCOBALAMIN/PYRIDOXINE HYDROCHLORIDE) [Concomitant]
  9. FAMOTIDINE [Concomitant]

REACTIONS (5)
  - ANOREXIA [None]
  - BONE MARROW DEPRESSION [None]
  - PANCYTOPENIA [None]
  - PYREXIA [None]
  - STOMATITIS HAEMORRHAGIC [None]
